FAERS Safety Report 14683112 (Version 4)
Quarter: 2025Q2

REPORT INFORMATION
  Report Type: Spontaneous
  Country: BR (occurrence: BR)
  Receive Date: 20180327
  Receipt Date: 20250401
  Transmission Date: 20250717
  Serious: Yes (Hospitalization, Other)
  Sender: ROCHE
  Company Number: BR-ROCHE-2089924

PATIENT
  Age: 33 Year
  Sex: Female

DRUGS (1)
  1. KADCYLA [Suspect]
     Active Substance: ADO-TRASTUZUMAB EMTANSINE
     Indication: Breast cancer metastatic
     Route: 065
     Dates: start: 20171208

REACTIONS (12)
  - Ill-defined disorder [Unknown]
  - Neuralgia [Unknown]
  - Pain in extremity [Unknown]
  - Spinal pain [Unknown]
  - Gait disturbance [Unknown]
  - Dysgraphia [Unknown]
  - Eating disorder [Unknown]
  - Dysphagia [Unknown]
  - Quadriparesis [Recovering/Resolving]
  - Hypersensitivity [Unknown]
  - Myalgia [Unknown]
  - Myopathy [Recovering/Resolving]
